FAERS Safety Report 20024056 (Version 1)
Quarter: 2021Q4

REPORT INFORMATION
  Report Type: Spontaneous
  Country: DE (occurrence: DE)
  Receive Date: 20211102
  Receipt Date: 20211102
  Transmission Date: 20220303
  Serious: Yes (Hospitalization, Other)
  Sender: FDA-Public Use
  Company Number: DE-ADRED-06779-02

PATIENT
  Age: 90 Year
  Sex: Female
  Weight: 55 kg

DRUGS (6)
  1. TORSEMIDE [Suspect]
     Active Substance: TORSEMIDE
     Indication: Product used for unknown indication
     Dosage: 5 MILLIGRAM, QD, 5 MILLIGRAM 0-1-0-0, TABLET
     Route: 048
  2. ASPIRIN [Suspect]
     Active Substance: ASPIRIN
     Dosage: 100 MILLIGRAM, QD, 100 MG, 0-1-0-0, TABLET
     Route: 048
  3. CANDESARTAN [Concomitant]
     Active Substance: CANDESARTAN
     Dosage: 16 MILLIGRAM, QD, 16 MG, 0-0-1-0, TABLET
     Route: 048
  4. PANTOPRAZOL                        /01263201/ [Concomitant]
     Dosage: 40 MILLIGRAM, QD, 40 MG, 1-0-0-0, TABLET
     Route: 048
  5. SIMVASTATIN [Concomitant]
     Active Substance: SIMVASTATIN
     Dosage: 20 MILLIGRAM, QD, 20 MG, 0-0-1-0, TABLET
     Route: 048
  6. CLONIDINE [Concomitant]
     Active Substance: CLONIDINE
     Dosage: 75 MILLIGRAM, QD, 75 MG, 0-1-0-0, TABLET
     Route: 048

REACTIONS (6)
  - Haematemesis [Unknown]
  - Eructation [Unknown]
  - Dyspepsia [Unknown]
  - Flatulence [Unknown]
  - Abdominal pain upper [Unknown]
  - Vomiting [Unknown]
